FAERS Safety Report 7898100-7 (Version None)
Quarter: 2011Q4

REPORT INFORMATION
  Report Type: 
  Country: None (occurrence: None)
  Receive Date: 20111107
  Receipt Date: 20111027
  Transmission Date: 20120403
  Serious: Yes (Other)
  Sender: FDA-Public Use
  Company Number: PL-GLAXOSMITHKLINE-B0760474A

PATIENT
  Age: 61 Year
  Sex: Male

DRUGS (2)
  1. BENDAMUSTINE [Suspect]
     Indication: NON-HODGKIN'S LYMPHOMA
     Dosage: 90MGM2 CYCLIC
     Route: 042
  2. OFATUMUMAB [Suspect]
     Indication: NON-HODGKIN'S LYMPHOMA
     Dosage: 1000MGM2 CYCLIC
     Route: 042

REACTIONS (1)
  - PULMONARY EMBOLISM [None]
